FAERS Safety Report 19061727 (Version 1)
Quarter: 2021Q1

REPORT INFORMATION
  Report Type: Report from Study
  Country: None (occurrence: RO)
  Receive Date: 20210325
  Receipt Date: 20210325
  Transmission Date: 20210420
  Serious: Yes (Hospitalization)
  Sender: FDA-Public Use
  Company Number: RO-ABBVIE-21K-135-3829507-00

PATIENT
  Age: 67 Year
  Sex: Male

DRUGS (2)
  1. DUODOPA [Suspect]
     Active Substance: CARBIDOPA\LEVODOPA
     Indication: PARKINSON^S DISEASE
     Dosage: DM 6.00 DC 4.10 ED 1.80 NRED 0; DMN 0.00 DCN 0.00 EDN 0.00 NREDN 0
     Route: 050
     Dates: start: 20190304
  2. DUODOPA [Suspect]
     Active Substance: CARBIDOPA\LEVODOPA

REACTIONS (4)
  - Psychomotor hyperactivity [Recovering/Resolving]
  - Aggression [Recovering/Resolving]
  - Disorientation [Recovering/Resolving]
  - Hallucination [Recovering/Resolving]

NARRATIVE: CASE EVENT DATE: 20210322
